FAERS Safety Report 5714729-6 (Version None)
Quarter: 2008Q2

REPORT INFORMATION
  Report Type: 
  Country: None (occurrence: None)
  Receive Date: 20080423
  Receipt Date: 20080421
  Transmission Date: 20081010
  Serious: Yes (Death)
  Sender: FDA-Public Use
  Company Number: AT-BAYER-200713874GDS

PATIENT
  Age: 61 Year
  Sex: Male

DRUGS (2)
  1. NEXAVAR [Suspect]
     Indication: HEPATIC NEOPLASM MALIGNANT
     Route: 065
     Dates: start: 20070704
  2. NOVALGIN [Concomitant]
     Indication: DRUG USE FOR UNKNOWN INDICATION
     Route: 065

REACTIONS (6)
  - ASTHENIA [None]
  - DEHYDRATION [None]
  - FALL [None]
  - HEPATIC FAILURE [None]
  - PYREXIA [None]
  - RENAL FAILURE [None]
